FAERS Safety Report 5854812-8 (Version None)
Quarter: 2008Q3

REPORT INFORMATION
  Report Type: 
  Country: None (occurrence: None)
  Receive Date: 20080822
  Receipt Date: 20080116
  Transmission Date: 20090109
  Serious: No
  Sender: FDA-Public Use
  Company Number: US-ABBOTT-08P-163-0434108-00

PATIENT
  Sex: Female
  Weight: 71.732 kg

DRUGS (3)
  1. SYNTHROID [Suspect]
     Indication: HYPOTHYROIDISM
     Route: 048
     Dates: start: 20070101, end: 20070716
  2. SYNTHROID [Suspect]
     Route: 048
     Dates: start: 20080106
  3. LEVOTHYROXINE SODIUM [Suspect]
     Indication: HYPOTHYROIDISM
     Route: 048
     Dates: start: 20070717, end: 20080105

REACTIONS (3)
  - ANGER [None]
  - MOOD SWINGS [None]
  - WEIGHT INCREASED [None]
